FAERS Safety Report 7966286-1 (Version None)
Quarter: 2011Q4

REPORT INFORMATION
  Report Type: 
  Country: None (occurrence: None)
  Receive Date: 20111208
  Receipt Date: 20111205
  Transmission Date: 20120403
  Serious: Yes (Disabling, Other)
  Sender: FDA-Public Use
  Company Number: US-PFIZER INC-2011153160

PATIENT
  Sex: Female

DRUGS (1)
  1. CHANTIX [Suspect]
     Indication: SMOKING CESSATION THERAPY
     Dosage: UNK
     Route: 048
     Dates: start: 20080909, end: 20081009

REACTIONS (10)
  - PANIC ATTACK [None]
  - IRRITABILITY [None]
  - MOOD SWINGS [None]
  - SUICIDAL IDEATION [None]
  - ANGER [None]
  - LOSS OF CONSCIOUSNESS [None]
  - ANXIETY [None]
  - INSOMNIA [None]
  - CONVULSION [None]
  - DEPRESSION [None]
